FAERS Safety Report 5123231-4 (Version None)
Quarter: 2006Q4

REPORT INFORMATION
  Report Type: 
  Country: None (occurrence: None)
  Receive Date: 20061005
  Receipt Date: 20060919
  Transmission Date: 20070319
  Serious: Yes (Hospitalization, Other)
  Sender: FDA-Public Use
  Company Number: FR200608001746

PATIENT
  Age: 67 Year
  Sex: Female

DRUGS (6)
  1. FORTEO [Suspect]
     Indication: OSTEOPOROSIS
     Dosage: 20 UG, DAILY (1/D), SUBCUTANEOUS
     Route: 058
     Dates: start: 20060204
  2. FORTEO [Concomitant]
  3. CORTISONE ACETATE [Concomitant]
  4. COUMADIN [Concomitant]
  5. DIGOXIN [Concomitant]
  6. POTASSIUM CHLORIDE [Concomitant]

REACTIONS (17)
  - ARTERITIS [None]
  - CONDITION AGGRAVATED [None]
  - DRY SKIN [None]
  - EAR INFECTION [None]
  - ERYTHEMA [None]
  - HEMIPARESIS [None]
  - INFLAMMATION [None]
  - MICTURITION URGENCY [None]
  - OESOPHAGITIS [None]
  - PAIN [None]
  - POLYCHONDRITIS [None]
  - PRURITUS [None]
  - RHINITIS [None]
  - SINUSITIS [None]
  - STOMATITIS [None]
  - THROMBOSIS [None]
  - WEIGHT INCREASED [None]
